FAERS Safety Report 24267475 (Version 1)
Quarter: 2024Q3

REPORT INFORMATION
  Report Type: Spontaneous
  Country: AT (occurrence: AT)
  Receive Date: 20240830
  Receipt Date: 20240830
  Transmission Date: 20241016
  Serious: Yes (Life-Threatening, Other)
  Sender: AMGEN
  Company Number: AT-AMGEN-AUTSP2024168648

PATIENT
  Age: 60 Year
  Sex: Female
  Weight: 75 kg

DRUGS (7)
  1. XGEVA [Suspect]
     Active Substance: DENOSUMAB
     Indication: Diffuse large B-cell lymphoma
     Dosage: UNK
     Route: 065
  2. XGEVA [Suspect]
     Active Substance: DENOSUMAB
     Indication: Mantle cell lymphoma
  3. XGEVA [Suspect]
     Active Substance: DENOSUMAB
     Indication: Metastases to bone
  4. CYCLOPHOSPHAMIDE [Concomitant]
     Active Substance: CYCLOPHOSPHAMIDE
     Indication: Diffuse large B-cell lymphoma
     Dosage: UNK
     Route: 065
  5. CYCLOPHOSPHAMIDE [Concomitant]
     Active Substance: CYCLOPHOSPHAMIDE
     Indication: Mantle cell lymphoma
  6. RITUXIMAB [Concomitant]
     Active Substance: RITUXIMAB
     Indication: Diffuse large B-cell lymphoma
     Dosage: UNK
     Route: 065
  7. RITUXIMAB [Concomitant]
     Active Substance: RITUXIMAB
     Indication: Mantle cell lymphoma

REACTIONS (5)
  - Stress cardiomyopathy [Unknown]
  - Delirium [Unknown]
  - Quadriplegia [Unknown]
  - Bone marrow failure [Unknown]
  - Arteriosclerosis [Unknown]
